FAERS Safety Report 15343167 (Version 1)
Quarter: 2018Q3

REPORT INFORMATION
  Report Type: Report from Study
  Country: CN (occurrence: CN)
  Receive Date: 20180903
  Receipt Date: 20180903
  Transmission Date: 20181010
  Serious: Yes (Other)
  Sender: FDA-Public Use
  Company Number: CN-ROCHE-2177061

PATIENT

DRUGS (11)
  1. BEVACIZUMAB. [Suspect]
     Active Substance: BEVACIZUMAB
     Dosage: 1ST, 15TH AND 29TH DATE OF RADIOTHERAPY
     Route: 042
  2. OXALIPLATIN. [Suspect]
     Active Substance: OXALIPLATIN
     Dosage: AFTER RADIOTHERAPY
     Route: 042
  3. FLUOROURACIL. [Suspect]
     Active Substance: FLUOROURACIL
     Dosage: DURING RADIOTHERAPY
     Route: 041
  4. BEVACIZUMAB. [Suspect]
     Active Substance: BEVACIZUMAB
     Indication: RECTAL CANCER
     Dosage: BEFORE RADIOTHERAPY
     Route: 042
  5. FLUOROURACIL. [Suspect]
     Active Substance: FLUOROURACIL
     Dosage: AFTER RADIOTHERAPY
     Route: 041
  6. OXALIPLATIN. [Suspect]
     Active Substance: OXALIPLATIN
     Indication: RECTAL CANCER
     Dosage: BEFORE RADIOTHERAPY
     Route: 042
  7. CALCIUM FOLINATE [Suspect]
     Active Substance: LEUCOVORIN CALCIUM
     Indication: RECTAL CANCER
     Dosage: BEFORE RADIOTHERAPY
     Route: 042
  8. CALCIUM FOLINATE [Suspect]
     Active Substance: LEUCOVORIN CALCIUM
     Dosage: AFTER RADIOTHERAPY
     Route: 042
  9. FLUOROURACIL. [Suspect]
     Active Substance: FLUOROURACIL
     Indication: RECTAL CANCER
     Dosage: BEFORE RADIOTHERAPY
     Route: 042
  10. FLUOROURACIL. [Suspect]
     Active Substance: FLUOROURACIL
     Dosage: BEFORE RADIOTHERAPY
     Route: 041
  11. FLUOROURACIL. [Suspect]
     Active Substance: FLUOROURACIL
     Dosage: AFTER RADIOTHERAPY
     Route: 042

REACTIONS (8)
  - Bone marrow failure [Unknown]
  - Gastrointestinal disorder [Unknown]
  - Diarrhoea [Unknown]
  - Weight decreased [Unknown]
  - Liver injury [Unknown]
  - Fatigue [Unknown]
  - Impaired healing [Unknown]
  - Anaemia [Unknown]
